FAERS Safety Report 5390804-3 (Version None)
Quarter: 2007Q3

REPORT INFORMATION
  Report Type: 
  Country: None (occurrence: None)
  Receive Date: 20070716
  Receipt Date: 20070706
  Transmission Date: 20080115
  Serious: Yes (Hospitalization)
  Sender: FDA-Public Use
  Company Number: DSM-2007-00048

PATIENT
  Sex: Female

DRUGS (3)
  1. OLMESARTAN MEDOXOMIL [Suspect]
     Indication: HYPERTENSION
     Dosage: 20 MG (20 MG, 1 IN 1 D), ORAL
     Route: 048
     Dates: start: 20060612, end: 20061201
  2. BISOPROLOL (BISOPROLOL) (TABLET) (BISOPROLOL) [Suspect]
     Indication: HYPERTENSION
     Dosage: ORAL
     Route: 048
     Dates: end: 20061201
  3. OMEPRAZOL (OMEPRAZOLE) (TABLET) (OMEPRAZOLE) [Suspect]
     Dosage: ORAL
     Route: 048
     Dates: end: 20061201

REACTIONS (2)
  - ARTHRALGIA [None]
  - HEPATITIS TOXIC [None]
